FAERS Safety Report 17960034 (Version 2)
Quarter: 2024Q4

REPORT INFORMATION
  Report Type: Spontaneous
  Country: HK (occurrence: HK)
  Receive Date: 20200629
  Receipt Date: 20241007
  Transmission Date: 20250115
  Serious: Yes (Hospitalization, Other)
  Sender: NOVARTIS
  Company Number: HK-NOVARTISPH-NVSC2020HK183062

PATIENT

DRUGS (1)
  1. COSENTYX [Suspect]
     Active Substance: SECUKINUMAB
     Indication: Product used for unknown indication
     Dosage: UNK
     Route: 065

REACTIONS (5)
  - Dyspnoea [Unknown]
  - Hepatocellular carcinoma [Unknown]
  - Metastases to lung [Unknown]
  - Latent tuberculosis [Unknown]
  - Hepatic enzyme increased [Unknown]
